FAERS Safety Report 14716957 (Version 1)
Quarter: 2018Q2

REPORT INFORMATION
  Report Type: Spontaneous
  Country: US (occurrence: US)
  Receive Date: 20180404
  Receipt Date: 20180404
  Transmission Date: 20180711
  Serious: No
  Sender: FDA-Public Use
  Company Number: US-LUNDBECK-DKLU2046010

PATIENT
  Sex: Male

DRUGS (3)
  1. NORTHERA [Suspect]
     Active Substance: DROXIDOPA
     Indication: AUTONOMIC NEUROPATHY
     Dosage: SCHEDULE D/FIXED DOSE
     Route: 048
     Dates: start: 20180224
  2. NORTHERA [Suspect]
     Active Substance: DROXIDOPA
     Indication: DIZZINESS
  3. NORTHERA [Suspect]
     Active Substance: DROXIDOPA
     Indication: ORTHOSTATIC HYPOTENSION

REACTIONS (4)
  - Decreased appetite [Recovering/Resolving]
  - Drug ineffective [Recovering/Resolving]
  - Dysstasia [Recovering/Resolving]
  - Dizziness [Recovering/Resolving]
